FAERS Safety Report 8960963 (Version 2)
Quarter: 2013Q2

REPORT INFORMATION
  Report Type: Spontaneous
  Country: DE (occurrence: DE)
  Receive Date: 20121213
  Receipt Date: 20130506
  Transmission Date: 20140414
  Serious: Yes (Other)
  Sender: FDA-Public Use
  Company Number: PHHY2012DE113608

PATIENT
  Age: 52 Year
  Sex: Male

DRUGS (3)
  1. TASIGNA [Suspect]
     Indication: CHRONIC MYELOID LEUKAEMIA
     Dosage: 450 MG, DAILY
     Route: 048
  2. TASIGNA [Suspect]
     Dosage: 450 MG, DAILY
     Route: 048
     Dates: start: 201207
  3. ACICLOVIR [Concomitant]
     Indication: ANTIVIRAL PROPHYLAXIS
     Dosage: 1200 MG PER DAY
     Route: 048
     Dates: start: 2011

REACTIONS (6)
  - Graft versus host disease [Not Recovered/Not Resolved]
  - Pneumonia fungal [Unknown]
  - Eosinophil count increased [Unknown]
  - Liver function test abnormal [Unknown]
  - Gamma-glutamyltransferase increased [Recovering/Resolving]
  - Blood alkaline phosphatase increased [Unknown]
